FAERS Safety Report 4304521-1 (Version None)
Quarter: 2004Q1

REPORT INFORMATION
  Report Type: 
  Country: None (occurrence: None)
  Receive Date: 20040224
  Receipt Date: 20040217
  Transmission Date: 20041129
  Serious: Yes (Hospitalization, Other)
  Sender: FDA-Public Use
  Company Number: 200410054BNE

PATIENT
  Age: 78 Year
  Sex: Female

DRUGS (12)
  1. ASPIRIN [Suspect]
     Indication: PLATELET AGGREGATION INHIBITION
     Dosage: 75 MG, TOTAL DAILY, ORAL
     Route: 048
     Dates: start: 20031201, end: 20040103
  2. AMILORIDE [Concomitant]
  3. FRUSEMIDE [Concomitant]
  4. NICORANDIL [Concomitant]
  5. AMLODIPINE [Concomitant]
  6. ISOSORBIDE MONONITRATE [Concomitant]
  7. SPIRONOLACTONE [Concomitant]
  8. DIGOXIN [Concomitant]
  9. FERROUS SULPHATE ANHYDROUS [Concomitant]
  10. LANSOPRAZOLE [Concomitant]
  11. CLARITHROMYCIN [Concomitant]
  12. CITALOPRAM [Concomitant]

REACTIONS (6)
  - EPISTAXIS [None]
  - GASTRITIS EROSIVE [None]
  - HAEMATEMESIS [None]
  - LETHARGY [None]
  - LOWER RESPIRATORY TRACT INFECTION [None]
  - NAUSEA [None]
